FAERS Safety Report 17881566 (Version 1)
Quarter: 2020Q2

REPORT INFORMATION
  Report Type: Spontaneous
  Country: US (occurrence: US)
  Receive Date: 20200610
  Receipt Date: 20200610
  Transmission Date: 20200714
  Serious: Yes (Hospitalization)
  Sender: FDA-Public Use
  Company Number: US-ROCHE-2618929

PATIENT
  Age: 58 Year
  Sex: Male

DRUGS (7)
  1. MODAFINIL. [Concomitant]
     Active Substance: MODAFINIL
  2. OCREVUS [Suspect]
     Active Substance: OCRELIZUMAB
     Indication: MULTIPLE SCLEROSIS
     Dosage: STRENGTH: 300 MG/10 ML
     Route: 042
     Dates: start: 20180606
  3. DILANTIN [Concomitant]
     Active Substance: PHENYTOIN
  4. ARMODAFINIL. [Concomitant]
     Active Substance: ARMODAFINIL
  5. VIMPAT [Concomitant]
     Active Substance: LACOSAMIDE
  6. VALACYCLOVIR [Concomitant]
     Active Substance: VALACYCLOVIR HYDROCHLORIDE
  7. PRAVASTATIN. [Concomitant]
     Active Substance: PRAVASTATIN

REACTIONS (1)
  - Seizure [Unknown]

NARRATIVE: CASE EVENT DATE: 20200608
